FAERS Safety Report 8737963 (Version 7)
Quarter: 2016Q1

REPORT INFORMATION
  Report Type: Spontaneous
  Country: IT (occurrence: IT)
  Receive Date: 20120823
  Receipt Date: 20160202
  Transmission Date: 20160526
  Serious: Yes (Hospitalization, Other)
  Sender: FDA-Public Use
  Company Number: IT-BRISTOL-MYERS SQUIBB COMPANY-16856403

PATIENT
  Age: 65 Year
  Sex: Male

DRUGS (5)
  1. ALLOPURINOL. [Concomitant]
     Active Substance: ALLOPURINOL
     Indication: HYPERURICAEMIA
     Route: 065
  2. PENTACOL [Concomitant]
     Active Substance: MESALAMINE
     Indication: INFLAMMATORY BOWEL DISEASE
     Dosage: TABS
     Route: 065
  3. BUSCOPAN [Suspect]
     Active Substance: BUTYLSCOPOLAMINE BROMIDE
     Indication: ABDOMINAL PAIN
     Dosage: BUSCOPAN 20 MG/ML. 1DF=1 DOSE
     Route: 030
     Dates: start: 20120721, end: 20120728
  4. IBUPROFEN. [Suspect]
     Active Substance: IBUPROFEN
     Indication: BACK PAIN
     Dosage: 200 MG, PRN
     Route: 048
     Dates: start: 20120721, end: 20120728
  5. COUMADIN [Suspect]
     Active Substance: WARFARIN SODIUM
     Indication: FACTOR V LEIDEN MUTATION
     Dosage: 1 DF, PRN
     Route: 048
     Dates: start: 20080101, end: 20120720

REACTIONS (6)
  - Haematuria [Recovering/Resolving]
  - Acute kidney injury [Recovering/Resolving]
  - Duodenal ulcer [Recovering/Resolving]
  - Anaemia [Recovering/Resolving]
  - Off label use [Unknown]
  - Rectal haemorrhage [Recovering/Resolving]

NARRATIVE: CASE EVENT DATE: 20120722
